FAERS Safety Report 8436101-0 (Version None)
Quarter: 2012Q2

REPORT INFORMATION
  Report Type: 
  Country: None (occurrence: None)
  Receive Date: 20120607
  Receipt Date: 20120607
  Transmission Date: 20120825
  Serious: Yes (Hospitalization)
  Sender: FDA-Public Use
  Company Number: None

PATIENT
  Age: 39 Year
  Sex: Female
  Weight: 47.6277 kg

DRUGS (1)
  1. AMOXICILLIN [Suspect]
     Indication: SINUSITIS
     Dosage: 875MG TWICE A DAY PO
     Route: 048
     Dates: start: 20110603, end: 20110605

REACTIONS (4)
  - DYSPNOEA [None]
  - VOMITING [None]
  - ANXIETY [None]
  - ARTHRALGIA [None]
